FAERS Safety Report 12692729 (Version 1)
Quarter: 2016Q3

REPORT INFORMATION
  Report Type: Spontaneous
  Country: US (occurrence: US)
  Receive Date: 20160829
  Receipt Date: 20160829
  Transmission Date: 20161109
  Serious: No
  Sender: FDA-Public Use
  Company Number: US-ASTRAZENECA-2016SE86747

PATIENT
  Age: 711 Month
  Weight: 72.6 kg

DRUGS (4)
  1. QUETIAPINE FUMARATE. [Suspect]
     Active Substance: QUETIAPINE FUMARATE
     Indication: IRRITABILITY
     Route: 048
     Dates: start: 201606
  2. QUETIAPINE FUMARATE. [Suspect]
     Active Substance: QUETIAPINE FUMARATE
     Indication: SLEEP DISORDER
     Route: 048
     Dates: start: 2014, end: 201606
  3. QUETIAPINE FUMARATE. [Suspect]
     Active Substance: QUETIAPINE FUMARATE
     Indication: SLEEP DISORDER
     Route: 048
     Dates: start: 201606
  4. QUETIAPINE FUMARATE. [Suspect]
     Active Substance: QUETIAPINE FUMARATE
     Indication: IRRITABILITY
     Route: 048
     Dates: start: 2014, end: 201606

REACTIONS (4)
  - Hypokinesia [Unknown]
  - Off label use [Unknown]
  - Restlessness [Unknown]
  - Product use issue [Unknown]

NARRATIVE: CASE EVENT DATE: 201606
